FAERS Safety Report 6232757-1 (Version None)
Quarter: 2009Q2

REPORT INFORMATION
  Report Type: 
  Country: None (occurrence: None)
  Receive Date: 20090612
  Receipt Date: 20090612
  Transmission Date: 20091009
  Serious: Yes (Hospitalization)
  Sender: FDA-Public Use
  Company Number: None

PATIENT
  Age: 85 Year
  Sex: Male
  Weight: 73.5 kg

DRUGS (3)
  1. LOVENOX [Suspect]
     Indication: THROMBOSIS PROPHYLAXIS
     Dosage: 30 MG DAILY SQ
     Route: 058
     Dates: start: 20090528, end: 20090601
  2. ARIXTRA [Concomitant]
  3. COUMADIN [Concomitant]

REACTIONS (1)
  - PACKED RED BLOOD CELL TRANSFUSION [None]
